FAERS Safety Report 7526628-8 (Version None)
Quarter: 2011Q2

REPORT INFORMATION
  Report Type: 
  Country: None (occurrence: None)
  Receive Date: 20110606
  Receipt Date: 20110523
  Transmission Date: 20111010
  Serious: Yes (Life-Threatening, Hospitalization)
  Sender: FDA-Public Use
  Company Number: FR-KINGPHARMUSA00001-K201100634

PATIENT
  Age: 71 Year
  Sex: Male

DRUGS (11)
  1. FUROSEMIDE [Suspect]
     Dosage: 20 MG, BID
     Route: 048
     Dates: end: 20100514
  2. THIOCOLCHICOSIDE [Concomitant]
     Dosage: UNK
     Dates: start: 20110511
  3. DICLOFENAC SODIUM [Suspect]
     Dosage: 100 MG, BID
     Route: 048
     Dates: start: 20110511, end: 20110514
  4. STABLON [Concomitant]
     Dosage: UNK
  5. SIMVASTATIN [Concomitant]
     Dosage: UNK
  6. ASPIRIN [Concomitant]
     Dosage: UNK
  7. JANUVIA [Concomitant]
     Dosage: UNK
  8. ACUPAN [Concomitant]
     Dosage: UNK
     Dates: start: 20110511
  9. TRAMADOL HCL [Concomitant]
     Dosage: UNK
     Dates: start: 20110511
  10. ALTACE [Suspect]
     Dosage: 5 MG, QD
     Route: 048
     Dates: end: 20110514
  11. METFORMIN HCL [Concomitant]
     Dosage: UNK
     Dates: end: 20110501

REACTIONS (8)
  - LACTIC ACIDOSIS [None]
  - RENAL FAILURE ACUTE [None]
  - ANURIA [None]
  - OEDEMA PERIPHERAL [None]
  - VOMITING [None]
  - HYPERKALAEMIA [None]
  - NAUSEA [None]
  - PAIN IN EXTREMITY [None]
